FAERS Safety Report 6272636-7 (Version None)
Quarter: 2009Q3

REPORT INFORMATION
  Report Type: 
  Country: None (occurrence: None)
  Receive Date: 20090717
  Receipt Date: 20090713
  Transmission Date: 20100115
  Serious: Yes (Hospitalization)
  Sender: FDA-Public Use
  Company Number: SE-BAXTER-2009BH011506

PATIENT
  Age: 87 Year
  Sex: Male

DRUGS (3)
  1. ENDOXAN BAXTER [Suspect]
     Indication: MULTIPLE MYELOMA
     Route: 042
     Dates: start: 20090604, end: 20090626
  2. PREDNISONE [Suspect]
     Indication: MULTIPLE MYELOMA
     Route: 048
     Dates: start: 20090604, end: 20090626
  3. ONCOVIN [Suspect]
     Indication: MULTIPLE MYELOMA
     Route: 042
     Dates: start: 20090604, end: 20090626

REACTIONS (1)
  - CONSTIPATION [None]
